FAERS Safety Report 10165522 (Version 2)
Quarter: 2014Q2

REPORT INFORMATION
  Report Type: Spontaneous
  Country: US (occurrence: US)
  Receive Date: 20140510
  Receipt Date: 20140510
  Transmission Date: 20141212
  Serious: No
  Sender: FDA-Public Use
  Company Number: US-BRISTOL-MYERS SQUIBB COMPANY-19846930

PATIENT
  Age: 52 Year
  Sex: Female
  Weight: 52.15 kg

DRUGS (1)
  1. BYDUREON  2MG SUSPENSION [Suspect]
     Indication: TYPE 2 DIABETES MELLITUS
     Route: 058
     Dates: start: 2013

REACTIONS (3)
  - Drug administration error [Unknown]
  - Product quality issue [Unknown]
  - Incorrect product storage [Unknown]
